FAERS Safety Report 5102109-6 (Version None)
Quarter: 2006Q3

REPORT INFORMATION
  Report Type: 
  Country: None (occurrence: None)
  Receive Date: 20060731
  Receipt Date: 20060526
  Transmission Date: 20061208
  Serious: No
  Sender: FDA-Public Use
  Company Number: 2006PV014572

PATIENT
  Age: 61 Year
  Sex: Female
  Weight: 96.1626 kg

DRUGS (4)
  1. BYETTA [Suspect]
     Indication: GLUCOSE TOLERANCE IMPAIRED
     Dosage: SEE IMAGE
     Route: 058
     Dates: start: 20060324, end: 20060501
  2. BYETTA [Suspect]
     Indication: HYPERGLYCAEMIA
     Dosage: SEE IMAGE
     Route: 058
     Dates: start: 20060324, end: 20060501
  3. BYETTA [Suspect]
     Indication: GLUCOSE TOLERANCE IMPAIRED
     Dosage: SEE IMAGE
     Route: 058
     Dates: start: 20060501
  4. BYETTA [Suspect]
     Indication: HYPERGLYCAEMIA
     Dosage: SEE IMAGE
     Route: 058
     Dates: start: 20060501

REACTIONS (4)
  - DRUG INEFFECTIVE [None]
  - INJECTION SITE RASH [None]
  - NAUSEA [None]
  - WEIGHT DECREASED [None]
